FAERS Safety Report 12499213 (Version 2)
Quarter: 2016Q3

REPORT INFORMATION
  Report Type: Spontaneous
  Country: US (occurrence: US)
  Receive Date: 20160627
  Receipt Date: 20160728
  Transmission Date: 20161109
  Serious: Yes (Death)
  Sender: FDA-Public Use
  Company Number: PHEH2016US015705

PATIENT
  Age: 48 Year
  Sex: Female
  Weight: 90.7 kg

DRUGS (1)
  1. TEGRETOL [Suspect]
     Active Substance: CARBAMAZEPINE
     Indication: SEIZURE
     Dosage: UNK UNK, QD
     Route: 048
     Dates: start: 19930401, end: 20160325

REACTIONS (5)
  - Respiratory failure [Fatal]
  - Dyspnoea [Fatal]
  - Immunodeficiency [Fatal]
  - Pneumonia staphylococcal [Fatal]
  - Septic shock [Fatal]

NARRATIVE: CASE EVENT DATE: 20130324
